FAERS Safety Report 13360074 (Version 3)
Quarter: 2017Q3

REPORT INFORMATION
  Report Type: Report from Study
  Country: NL (occurrence: NL)
  Receive Date: 20170322
  Receipt Date: 20170727
  Transmission Date: 20171127
  Serious: Yes (Hospitalization)
  Sender: FDA-Public Use
  Company Number: PHHO2015NL005616

PATIENT
  Age: 59 Year
  Sex: Female
  Weight: 73.3 kg

DRUGS (3)
  1. FRAXODI [Suspect]
     Active Substance: NADROPARIN CALCIUM
     Indication: PRODUCT USED FOR UNKNOWN INDICATION
     Route: 065
  2. MEK162 [Suspect]
     Active Substance: BINIMETINIB
     Indication: MALIGNANT MELANOMA
     Dosage: 45 MG, BID
     Route: 048
     Dates: start: 20140812, end: 20150403
  3. LEE011 [Suspect]
     Active Substance: RIBOCICLIB
     Indication: MALIGNANT MELANOMA
     Dosage: 200 MG, QD
     Route: 048
     Dates: start: 20140812, end: 20150403

REACTIONS (1)
  - Intracranial tumour haemorrhage [Not Recovered/Not Resolved]

NARRATIVE: CASE EVENT DATE: 20150411
